FAERS Safety Report 6369500-1 (Version None)
Quarter: 2009Q3

REPORT INFORMATION
  Report Type: 
  Country: None (occurrence: None)
  Receive Date: 20090923
  Receipt Date: 20090922
  Transmission Date: 20100115
  Serious: Yes (Death)
  Sender: FDA-Public Use
  Company Number: RS-SANOFI-SYNTHELABO-A01200909704

PATIENT
  Sex: Female

DRUGS (7)
  1. METFORMIN HCL [Concomitant]
     Dates: start: 20090210
  2. GLIMEPIRIDE [Concomitant]
     Dates: start: 20090210
  3. CILAZAPRIL [Concomitant]
     Dates: start: 20090120
  4. METOPROLOL TARTRATE [Concomitant]
     Dates: start: 20090120
  5. FLUOROURACIL [Suspect]
     Indication: COLORECTAL CANCER
     Dosage: 3700 MG
     Route: 041
  6. OXALIPLATIN [Suspect]
     Indication: COLORECTAL CANCER
     Dosage: 150 MG
     Route: 041
  7. AVE5026 OR PLACEBO [Concomitant]
     Indication: THROMBOSIS PROPHYLAXIS
     Dates: start: 20090810

REACTIONS (1)
  - DEATH [None]
